FAERS Safety Report 8902722 (Version 3)
Quarter: 2013Q1

REPORT INFORMATION
  Report Type: Spontaneous
  Country: US (occurrence: US)
  Receive Date: 20121112
  Receipt Date: 20130111
  Transmission Date: 20140127
  Serious: No
  Sender: FDA-Public Use
  Company Number: US-009507513-1211USA004580

PATIENT
  Sex: Male
  Weight: 82.99 kg

DRUGS (14)
  1. PEG-INTRON [Suspect]
     Indication: HEPATITIS C
     Dosage: 120 MICROGRAM, QW
     Route: 058
     Dates: start: 20121101, end: 2012
  2. VICTRELIS [Suspect]
     Dosage: 800 MG, TID
     Route: 048
     Dates: end: 2012
  3. RIBASPHERE [Suspect]
     Dosage: 600 MG IN THE MORNING AND 400 MG IN THE EVENING
     Dates: end: 2012
  4. LACTULOSE [Concomitant]
     Dosage: 3 DF, QOD
  5. VICOPROFEN [Concomitant]
     Dosage: 7.5MG/200MG TABS, BID
     Route: 048
  6. DIOVAN [Concomitant]
     Dosage: ^320/25^ DAILY
  7. ATENOLOL [Concomitant]
     Dosage: 50 MG, UNK
  8. CLONAZEPAM [Concomitant]
     Dosage: 0.5 MG, UNK
  9. TAMSULOSIN HYDROCHLORIDE [Concomitant]
     Dosage: 0.4 MG, UNK
  10. OXYCODONE [Concomitant]
     Dosage: 5 MG, QD
  11. CELEXA [Concomitant]
     Dosage: 20 MG, HS
  12. ACIDOPHILUS [Concomitant]
     Dosage: 16 MG, UNK
  13. CHOLECALCIFEROL [Concomitant]
     Dosage: 2 DF, UNK
     Route: 048
  14. VITAMINS (UNSPECIFIED) [Concomitant]

REACTIONS (6)
  - Tenderness [Not Recovered/Not Resolved]
  - Fatigue [Not Recovered/Not Resolved]
  - Nausea [Not Recovered/Not Resolved]
  - Vomiting [Not Recovered/Not Resolved]
  - Chills [Not Recovered/Not Resolved]
  - Pyrexia [Not Recovered/Not Resolved]
